FAERS Safety Report 7224355-8 (Version None)
Quarter: 2011Q1

REPORT INFORMATION
  Report Type: 
  Country: None (occurrence: None)
  Receive Date: 20110104
  Receipt Date: 20101220
  Transmission Date: 20110831
  Serious: Yes (Other)
  Sender: FDA-Public Use
  Company Number: AUR-APL-2010-03204

PATIENT
  Age: 65 Year
  Sex: Male
  Weight: 82.54 kg

DRUGS (4)
  1. HYDROCHLOROTHIAZDE TAB [Suspect]
     Indication: HYPERTENSION
     Dosage: 25 MG
     Dates: start: 20100101
  2. BENICAR [Suspect]
     Indication: HYPERTENSION
     Dosage: 20 MG - QD
     Dates: start: 20100101
  3. WARFARIN SODIUM [Concomitant]
  4. LIPITOR [Suspect]
     Indication: BLOOD CHOLESTEROL INCREASED
     Dosage: 10MG-QD

REACTIONS (4)
  - PNEUMONIA [None]
  - MUSCULOSKELETAL PAIN [None]
  - MUSCULAR WEAKNESS [None]
  - HYPERTENSION [None]
